FAERS Safety Report 16993123 (Version 1)
Quarter: 2019Q4

REPORT INFORMATION
  Report Type: Spontaneous
  Country: US (occurrence: US)
  Receive Date: 20191105
  Receipt Date: 20191105
  Transmission Date: 20200122
  Serious: Yes (Hospitalization, Other)
  Sender: FDA-Public Use
  Company Number: US-LUNDBECK-DKLU3006671

PATIENT
  Age: 87 Year
  Sex: Male

DRUGS (1)
  1. NORTHERA [Suspect]
     Active Substance: DROXIDOPA
     Indication: PARKINSON^S DISEASE
     Route: 048
     Dates: start: 20191007

REACTIONS (5)
  - Condition aggravated [Unknown]
  - Dysphagia [Unknown]
  - Parkinson^s disease [Unknown]
  - Urinary tract infection [Unknown]
  - Swelling [Unknown]

NARRATIVE: CASE EVENT DATE: 20191023
